FAERS Safety Report 4435149-0 (Version None)
Quarter: 2004Q3

REPORT INFORMATION
  Report Type: 
  Country: None (occurrence: None)
  Receive Date: 20040827
  Receipt Date: 20040610
  Transmission Date: 20050211
  Serious: Yes (Other)
  Sender: FDA-Public Use
  Company Number: US-ROCHE-370754

PATIENT
  Age: 16 Year
  Sex: Female

DRUGS (4)
  1. ACCUTANE [Suspect]
     Indication: ACNE
     Route: 048
     Dates: start: 20021114
  2. ACCUTANE [Suspect]
     Route: 048
     Dates: start: 20030304, end: 20030410
  3. ACCUTANE [Suspect]
     Route: 048
     Dates: start: 20030513, end: 20030619
  4. ACCUTANE [Suspect]
     Route: 048
     Dates: end: 20030715

REACTIONS (6)
  - BLEPHARITIS [None]
  - CELLULITIS [None]
  - CONJUNCTIVITIS [None]
  - CONJUNCTIVITIS VIRAL [None]
  - EYE INFECTION [None]
  - HORDEOLUM [None]
